FAERS Safety Report 5283218-8 (Version None)
Quarter: 2007Q2

REPORT INFORMATION
  Report Type: 
  Country: None (occurrence: None)
  Receive Date: 20070402
  Receipt Date: 20070330
  Transmission Date: 20071010
  Serious: Yes (Hospitalization)
  Sender: FDA-Public Use
  Company Number: FR-GLAXOSMITHKLINE-B0463321A

PATIENT
  Age: 60 Year
  Sex: Female

DRUGS (4)
  1. MALARONE [Suspect]
     Indication: MALARIA PROPHYLAXIS
     Dosage: 1TAB PER DAY
     Route: 048
     Dates: start: 20070226, end: 20070318
  2. AMOXICILLIN [Suspect]
     Route: 048
     Dates: start: 20070215
  3. ANTIBIOTIC (UNKNOWN NAME) [Concomitant]
     Route: 048
  4. DAFLON [Concomitant]

REACTIONS (14)
  - APHTHOUS STOMATITIS [None]
  - BACK PAIN [None]
  - CHILLS [None]
  - FATIGUE [None]
  - FEELING COLD [None]
  - MYALGIA [None]
  - NAUSEA [None]
  - PRURITUS [None]
  - PYREXIA [None]
  - SWOLLEN TONGUE [None]
  - THIRST [None]
  - TREMOR [None]
  - URTICARIA [None]
  - VISUAL DISTURBANCE [None]
